FAERS Safety Report 7505178 (Version 2)
Quarter: 2012Q4

REPORT INFORMATION
  Report Type: Report from Study
  Country: US (occurrence: US)
  Receive Date: 20100728
  Receipt Date: 20121231
  Transmission Date: 20130627
  Serious: Yes (Hospitalization)
  Sender: FDA-Public Use
  Company Number: US-BRISTOL-MYERS SQUIBB COMPANY-15182231

PATIENT
  Age: 58 Year
  Sex: Male
  Weight: 86.5 kg

DRUGS (19)
  1. CETUXIMAB [Suspect]
     Indication: NON-SMALL CELL LUNG CANCER METASTATIC
     Dosage: Recent inf:18Jun10,inf:5
     Route: 042
     Dates: start: 20100521
  2. CISPLATIN FOR INJ [Suspect]
     Indication: NON-SMALL CELL LUNG CANCER METASTATIC
     Dosage: Recent inf:18Jun10, inf:2
caps
     Route: 042
     Dates: start: 20100524, end: 201006
  3. GEMCITABINE [Suspect]
     Indication: NON-SMALL CELL LUNG CANCER METASTATIC
     Dosage: Recent inf:18Jun10,inf:3
     Route: 042
     Dates: start: 20100521
  4. K-DUR [Concomitant]
     Route: 065
  5. LASIX [Concomitant]
     Route: 065
  6. OXYCONTIN [Concomitant]
     Dosage: Dosage:2-3 hrs As needed.
     Route: 065
  7. ATIVAN [Concomitant]
     Dosage: Dosage:per 6 hr as needed.
     Route: 065
  8. COLACE [Concomitant]
     Dosage: Dosage:2 in 1 Day PRN.
     Route: 065
  9. MIRALAX [Concomitant]
     Route: 065
  10. ZOFRAN [Concomitant]
     Dosage: Dosage: per 8 hr/PRN.
     Route: 065
  11. COMPAZINE [Concomitant]
     Dosage: Dosage:per 8hr/PRN.
     Route: 065
  12. LIPITOR [Concomitant]
     Indication: HYPERLIPIDAEMIA
     Route: 065
  13. ZETIA [Concomitant]
     Indication: HYPERLIPIDAEMIA
     Route: 065
  14. MULTIVITAMINS [Concomitant]
     Route: 065
  15. HYDROCODONE + ACETAMINOPHEN [Concomitant]
     Dosage: 1 DF:1-2 tabs 4-6hrs as needed.
     Route: 065
  16. ORAMORPH [Concomitant]
     Route: 065
  17. AMBIEN [Concomitant]
     Dosage: Dosage:At night daily.
     Route: 065
  18. LOVENOX [Concomitant]
     Route: 058
  19. KEFLEX [Concomitant]
     Indication: CELLULITIS
     Route: 065
     Dates: start: 201006, end: 201006

REACTIONS (2)
  - Dyspnoea [Recovered/Resolved]
  - Malignant pleural effusion [Recovered/Resolved]
